FAERS Safety Report 10136895 (Version 1)
Quarter: 2014Q2

REPORT INFORMATION
  Report Type: Spontaneous
  Country: US (occurrence: None)
  Receive Date: 20140428
  Receipt Date: 20140428
  Transmission Date: 20141212
  Serious: Yes (Disabling, Other)
  Sender: FDA-Public Use
  Company Number: None

PATIENT
  Age: 86 Year
  Sex: Female
  Weight: 61.24 kg

DRUGS (11)
  1. CLOPIDOGREL [Suspect]
     Indication: CORONARY ARTERIAL STENT INSERTION
     Route: 048
     Dates: start: 20121128, end: 20130224
  2. CLOPIDOGREL [Suspect]
     Indication: PLATELET AGGREGATION
     Route: 048
     Dates: start: 20121128, end: 20130224
  3. CLOPIDOGREL [Suspect]
     Indication: PROPHYLAXIS
     Route: 048
     Dates: start: 20121128, end: 20130224
  4. ATENOLOL [Concomitant]
  5. HYDROCHLOROTHIAZIDE [Concomitant]
  6. ESTRACE [Concomitant]
  7. CLONIDINE HCL [Concomitant]
  8. MULTIPLE VITAMEN 1 A DAY [Concomitant]
  9. ASPIRIN [Concomitant]
  10. FISH OIL [Concomitant]
  11. LUTEIN [Concomitant]

REACTIONS (2)
  - Diarrhoea [None]
  - Weight decreased [None]
